FAERS Safety Report 23800408 (Version 1)
Quarter: 2024Q2

REPORT INFORMATION
  Report Type: Spontaneous
  Country: US (occurrence: None)
  Receive Date: 20240430
  Receipt Date: 20240430
  Transmission Date: 20240716
  Serious: No
  Sender: FDA-Public Use
  Company Number: US-Calliditas-2024CAL00644

PATIENT
  Age: 33 Year
  Sex: Male
  Weight: 94.8 kg

DRUGS (1)
  1. TARPEYO [Suspect]
     Active Substance: BUDESONIDE
     Indication: IgA nephropathy
     Dosage: 16MG (4MG CAPSULES) ONCE DAILY
     Route: 048
     Dates: start: 20240308

REACTIONS (4)
  - Blood urine present [Unknown]
  - Illness [Unknown]
  - White blood cells urine positive [Unknown]
  - Irritability [Unknown]
